FAERS Safety Report 12993160 (Version 1)
Quarter: 2016Q4

REPORT INFORMATION
  Report Type: Spontaneous
  Country: CN (occurrence: CN)
  Receive Date: 20161202
  Receipt Date: 20161202
  Transmission Date: 20170207
  Serious: Yes (Death, Hospitalization)
  Sender: FDA-Public Use
  Company Number: CN-FRESENIUS KABI-FK201609386

PATIENT
  Age: 52 Year
  Sex: Male

DRUGS (3)
  1. HYDROXYCAMPTOTHECIN [Suspect]
     Active Substance: 10-HYDROXYCAMPTOTHECIN
     Indication: HEPATOCELLULAR CARCINOMA
  2. EPIRUBICIN (MANUFACTURER UNKNOWN) [Suspect]
     Active Substance: EPIRUBICIN
     Indication: HEPATOCELLULAR CARCINOMA
     Route: 065
  3. FLUOROURACIL (MANUFACTURER UNKNOWN) [Suspect]
     Active Substance: FLUOROURACIL
     Indication: HEPATOCELLULAR CARCINOMA
     Route: 065

REACTIONS (2)
  - Tumour lysis syndrome [Unknown]
  - Multiple organ dysfunction syndrome [Fatal]
